FAERS Safety Report 6453038-7 (Version None)
Quarter: 2009Q4

REPORT INFORMATION
  Report Type: 
  Country: None (occurrence: None)
  Receive Date: 20091124
  Receipt Date: 20090826
  Transmission Date: 20100525
  Serious: No
  Sender: FDA-Public Use
  Company Number: US-ABBOTT-09P-163-0580537-00

PATIENT
  Sex: Female
  Weight: 118.04 kg

DRUGS (1)
  1. TRICOR [Suspect]
     Indication: BLOOD CHOLESTEROL INCREASED
     Dates: start: 20090603, end: 20090607

REACTIONS (9)
  - ASTHENIA [None]
  - COUGH [None]
  - DEHYDRATION [None]
  - DYSGEUSIA [None]
  - GRIEF REACTION [None]
  - HYPERSENSITIVITY [None]
  - HYPOPHAGIA [None]
  - MEDICAL DEVICE REMOVAL [None]
  - VOMITING [None]
